FAERS Safety Report 7063708-8 (Version None)
Quarter: 2010Q4

REPORT INFORMATION
  Report Type: 
  Country: None (occurrence: None)
  Receive Date: 20101026
  Receipt Date: 20101018
  Transmission Date: 20110411
  Serious: Yes (Other)
  Sender: FDA-Public Use
  Company Number: IR-US-EMD SERONO, INC.-7022734

PATIENT
  Age: 39 Year
  Sex: Female

DRUGS (2)
  1. OVIDREL (CHORIOGONADOTROPIN ALFA FOR INJECTION) [Suspect]
     Indication: IN VITRO FERTILISATION
  2. RECOMBINANT FOLLICLE STIMULATING HORMONE (RFSH) [Suspect]
     Indication: IN VITRO FERTILISATION

REACTIONS (1)
  - CAROTID ARTERY THROMBOSIS [None]
